FAERS Safety Report 9171735 (Version 1)
Quarter: 2013Q1

REPORT INFORMATION
  Report Type: Spontaneous
  Country: FR (occurrence: None)
  Receive Date: 20130318
  Receipt Date: 20130318
  Transmission Date: 20140127
  Serious: Yes (Death, Hospitalization, Other)
  Sender: FDA-Public Use
  Company Number: 2013000036

PATIENT
  Age: 87 Year
  Sex: Female

DRUGS (4)
  1. ACEON (PERINDOPRIL ERBUMINE) TABLET [Suspect]
     Indication: CARDIAC FAILURE
     Route: 048
     Dates: start: 201205
  2. CARDENSIEL (BISOPROLOL FUMARATE) [Concomitant]
  3. KARDEGIC (ACETYLSALICYLATE LYSINE) [Concomitant]
  4. MONICOR (ISOSORBIDE MONONITRATE) [Concomitant]

REACTIONS (8)
  - Pulmonary embolism [None]
  - Atrioventricular block complete [None]
  - Bradycardia [None]
  - Gastroenteritis [None]
  - Cardiac pacemaker insertion [None]
  - Renal failure acute [None]
  - Hyperkalaemia [None]
  - Cough [None]
